FAERS Safety Report 9462245 (Version 1)
Quarter: 2013Q3

REPORT INFORMATION
  Report Type: Spontaneous
  Country: US (occurrence: US)
  Receive Date: 20130816
  Receipt Date: 20130816
  Transmission Date: 20140515
  Serious: Yes (Hospitalization)
  Sender: FDA-Public Use
  Company Number: US-GLAXOSMITHKLINE-A1035585A

PATIENT
  Age: 63 Year
  Sex: Female

DRUGS (16)
  1. TYKERB [Suspect]
     Indication: BREAST CANCER
     Dosage: 1000MG PER DAY
     Route: 048
     Dates: start: 20130620, end: 20130715
  2. AUGMENTIN [Suspect]
     Indication: CYST
     Route: 065
  3. ATENOLOL [Concomitant]
  4. HYDROCHLOROTHIAZIDE [Concomitant]
  5. LISINOPRIL [Concomitant]
  6. MAGNESIUM OXIDE [Concomitant]
  7. BABY ASPIRIN [Concomitant]
  8. VITAMIN D [Concomitant]
  9. MULTIVITAMIN [Concomitant]
  10. CALCIUM ACETATE [Concomitant]
  11. POTASSIUM + SODIUM PHOSPHATE [Concomitant]
  12. HERCEPTIN [Concomitant]
  13. AREDIA [Concomitant]
  14. MORPHINE SULFATE [Concomitant]
  15. RED YEAST RICE [Concomitant]
  16. AMOXICILLIN [Concomitant]

REACTIONS (14)
  - Anaphylactic reaction [Unknown]
  - Muscle spasms [Unknown]
  - Fatigue [Unknown]
  - Headache [Unknown]
  - Nervousness [Unknown]
  - Dizziness [Unknown]
  - Insomnia [Unknown]
  - Decreased appetite [Unknown]
  - Diarrhoea [Unknown]
  - Swollen tongue [Unknown]
  - Oedema mouth [Unknown]
  - Pharyngeal oedema [Unknown]
  - Chest discomfort [Unknown]
  - Dyspnoea [Unknown]
